FAERS Safety Report 8425571-X (Version None)
Quarter: 2012Q2

REPORT INFORMATION
  Report Type: 
  Country: None (occurrence: None)
  Receive Date: 20120531
  Receipt Date: 20120523
  Transmission Date: 20120825
  Serious: Yes (Other)
  Sender: FDA-Public Use
  Company Number: 2012SP020278

PATIENT
  Age: 50 Year
  Sex: Female

DRUGS (3)
  1. PEGINTERFERON ALFA-2B [Suspect]
     Indication: PRODUCT USED FOR UNKNOWN INDICATION
     Dates: start: 20010101
  2. PEGINTERFERON ALFA-2B [Suspect]
     Indication: PRODUCT USED FOR UNKNOWN INDICATION
     Dates: start: 20120222
  3. VICTRELIS [Suspect]
     Indication: PRODUCT USED FOR UNKNOWN INDICATION

REACTIONS (9)
  - FATIGUE [None]
  - ANAEMIA [None]
  - DRY SKIN [None]
  - RASH GENERALISED [None]
  - VOMITING [None]
  - DYSPNOEA [None]
  - SUICIDAL IDEATION [None]
  - DIARRHOEA [None]
  - SWELLING [None]
